FAERS Safety Report 12613621 (Version 1)
Quarter: 2016Q3

REPORT INFORMATION
  Report Type: Spontaneous
  Country: US (occurrence: None)
  Receive Date: 20160801
  Receipt Date: 20160801
  Transmission Date: 20161109
  Serious: No
  Sender: FDA-Public Use
  Company Number: None

PATIENT
  Age: 45 Year
  Sex: Female
  Weight: 106.6 kg

DRUGS (2)
  1. ZECUITY [Suspect]
     Active Substance: SUMATRIPTAN SUCCINATE
  2. ZECUITY [Suspect]
     Active Substance: SUMATRIPTAN SUCCINATE
     Indication: MIGRAINE
     Dosage: 1 PATCH AS NEEDED  APPLIED AS MEDICATED PATCH TO SKIN
     Route: 062

REACTIONS (8)
  - Application site erythema [None]
  - Application site irritation [None]
  - Burning sensation [None]
  - Pruritus [None]
  - Application site swelling [None]
  - Application site scar [None]
  - Application site pruritus [None]
  - Application site vesicles [None]

NARRATIVE: CASE EVENT DATE: 20160514
